FAERS Safety Report 13473249 (Version 1)
Quarter: 2017Q2

REPORT INFORMATION
  Report Type: Spontaneous
  Country: GB (occurrence: GB)
  Receive Date: 20170424
  Receipt Date: 20170424
  Transmission Date: 20170830
  Serious: Yes (Hospitalization, Other)
  Sender: FDA-Public Use
  Company Number: GB-MYLANLABS-2017M1024458

PATIENT

DRUGS (13)
  1. BECLOMETHASONE [Concomitant]
     Active Substance: BECLOMETHASONE
     Dosage: 200 ?G, BID
     Route: 055
  2. GLICLAZIDE [Concomitant]
     Active Substance: GLICLAZIDE
     Dosage: IN THE MORNING.
  3. SALBUTAMOL [Concomitant]
     Active Substance: ALBUTEROL
     Dosage: 1 PUFF FOUR TIMES A DAY.
     Route: 055
  4. TEMAZEPAM. [Concomitant]
     Active Substance: TEMAZEPAM
     Dosage: AT NIGHT
  5. RIVAROXABAN [Concomitant]
     Active Substance: RIVAROXABAN
     Dosage: 20 MG, QD
  6. ALOGLIPTIN. [Concomitant]
     Active Substance: ALOGLIPTIN
     Dosage: IN THE MORNING.
  7. DILTIAZEM. [Concomitant]
     Active Substance: DILTIAZEM
     Dosage: 90 MG, BID
  8. FERROUS SULFATE. [Concomitant]
     Active Substance: FERROUS SULFATE
     Dosage: 200 MG, QD
  9. FUROSEMIDE. [Concomitant]
     Active Substance: FUROSEMIDE
     Dosage: IN THE MORNING.
  10. BISOPROLOL [Suspect]
     Active Substance: BISOPROLOL
     Indication: ATRIAL FIBRILLATION
     Dosage: 2.5 MG, UNK
     Route: 048
     Dates: end: 20161020
  11. METFORMIN [Concomitant]
     Active Substance: METFORMIN HYDROCHLORIDE
     Dosage: WITH MEALS
  12. SIMVASTATIN. [Concomitant]
     Active Substance: SIMVASTATIN
     Dosage: IN THE NIGHT.
  13. ALLOPURINOL. [Concomitant]
     Active Substance: ALLOPURINOL
     Dosage: 300 MG, QD

REACTIONS (2)
  - Asthma [Recovered/Resolved]
  - Contraindicated product administered [Unknown]

NARRATIVE: CASE EVENT DATE: 20161020
